FAERS Safety Report 4461977-1 (Version None)
Quarter: 2004Q3

REPORT INFORMATION
  Report Type: 
  Country: None (occurrence: None)
  Receive Date: 20040927
  Receipt Date: 20040927
  Transmission Date: 20050211
  Serious: Yes (Other)
  Sender: FDA-Public Use
  Company Number: None

PATIENT
  Sex: Female
  Weight: 96.1626 kg

DRUGS (1)
  1. ALLEGRA-D [Suspect]
     Indication: RHINITIS
     Dosage: 1 BID PO ORAL
     Route: 048
     Dates: start: 20040923, end: 20040925

REACTIONS (8)
  - DRY MOUTH [None]
  - HEADACHE [None]
  - HOT FLUSH [None]
  - NERVOUSNESS [None]
  - PHARMACEUTICAL PRODUCT COMPLAINT [None]
  - STOOL ANALYSIS ABNORMAL [None]
  - TACHYCARDIA [None]
  - TREMOR [None]
